FAERS Safety Report 8445917-6 (Version None)
Quarter: 2012Q2

REPORT INFORMATION
  Report Type: 
  Country: None (occurrence: None)
  Receive Date: 20120618
  Receipt Date: 20120608
  Transmission Date: 20120825
  Serious: Yes (Hospitalization, Other)
  Sender: FDA-Public Use
  Company Number: US-ABBOTT-12P-163-0929071-00

PATIENT
  Age: 63 Year
  Sex: Female

DRUGS (9)
  1. BIOFILM [Concomitant]
     Indication: STEROID THERAPY
  2. BIOFILM [Concomitant]
     Indication: ALOPECIA
  3. ALIGN [Concomitant]
     Indication: PRODUCT USED FOR UNKNOWN INDICATION
     Dosage: PILL
  4. ZOLOFT [Concomitant]
     Indication: DEPRESSION
     Dosage: 75MG DAILY
  5. BIOFILM [Concomitant]
     Indication: SUPPLEMENTATION THERAPY
  6. LOPID [Concomitant]
     Indication: PRODUCT USED FOR UNKNOWN INDICATION
     Dosage: 2 PILLS PER DAY 1/2 HOUR BEFORE MEALS
  7. HUMIRA [Suspect]
  8. PRILOSEC [Concomitant]
     Indication: PRODUCT USED FOR UNKNOWN INDICATION
     Dosage: PILL
  9. HUMIRA [Suspect]
     Indication: CROHN'S DISEASE
     Dosage: LOADING DOSE
     Dates: start: 20120411

REACTIONS (10)
  - LYMPH NODES SCAN ABNORMAL [None]
  - OROPHARYNGEAL PAIN [None]
  - HAEMORRHAGE [None]
  - ABDOMINAL PAIN [None]
  - PAIN [None]
  - MALAISE [None]
  - WEIGHT DECREASED [None]
  - ALOPECIA [None]
  - DEPRESSION [None]
  - FISTULA [None]
